FAERS Safety Report 15466415 (Version 1)
Quarter: 2018Q4

REPORT INFORMATION
  Report Type: Report from Study
  Country: CA (occurrence: CA)
  Receive Date: 20181004
  Receipt Date: 20181004
  Transmission Date: 20190204
  Serious: Yes (Hospitalization, Other)
  Sender: FDA-Public Use
  Company Number: CA-BRISTOL-MYERS SQUIBB COMPANY-BMS-2018-037804

PATIENT
  Age: 52 Year
  Sex: Male

DRUGS (2)
  1. YERVOY [Suspect]
     Active Substance: IPILIMUMAB
     Indication: METASTATIC MALIGNANT MELANOMA
     Dosage: UNK, Q3WK
     Route: 065
     Dates: start: 20180413, end: 20180511
  2. NIVOLUMAB [Suspect]
     Active Substance: NIVOLUMAB
     Indication: METASTATIC MALIGNANT MELANOMA
     Dosage: UNK, Q3WK
     Route: 065
     Dates: start: 20180413, end: 20180511

REACTIONS (11)
  - Liver function test increased [Unknown]
  - Rash [Unknown]
  - Diabetic ketoacidosis [Recovered/Resolved]
  - Chromaturia [Unknown]
  - Abdominal pain [Unknown]
  - Weight fluctuation [Unknown]
  - Autoimmune hepatitis [Recovered/Resolved]
  - Pancreatic failure [Recovering/Resolving]
  - Transaminases increased [Unknown]
  - Diarrhoea [Unknown]
  - Colitis [Unknown]

NARRATIVE: CASE EVENT DATE: 20180525
